FAERS Safety Report 8791366 (Version 1)
Quarter: 2012Q4

REPORT INFORMATION
  Report Type: Spontaneous
  Country: US (occurrence: None)
  Receive Date: 20120914
  Receipt Date: 20120914
  Transmission Date: 20130627
  Serious: No
  Sender: FDA-Public Use
  Company Number: None

PATIENT
  Sex: Female
  Weight: 74.84 kg

DRUGS (2)
  1. MELOXICAM [Suspect]
     Indication: ARTHRITIS
     Dosage: 7.5 mg once or twice daily mouth 

over the past year + a half
  2. MELOXICAM [Suspect]
     Indication: BACK PAIN
     Dosage: 7.5 mg once or twice daily mouth 

over the past year + a half

REACTIONS (4)
  - Weight increased [None]
  - Urticaria [None]
  - Neck pain [None]
  - Constipation [None]
